FAERS Safety Report 13466024 (Version 2)
Quarter: 2017Q2

REPORT INFORMATION
  Report Type: Spontaneous
  Country: US (occurrence: US)
  Receive Date: 20170421
  Receipt Date: 20170512
  Transmission Date: 20170830
  Serious: No
  Sender: FDA-Public Use
  Company Number: US-PFIZER INC-2016447937

PATIENT
  Age: 21 Year
  Sex: Female

DRUGS (4)
  1. RIZATRIPTAN. [Concomitant]
     Active Substance: RIZATRIPTAN
     Indication: MIGRAINE
     Dosage: 10 MG, UNK (TAKE 1 AT ONSET OF MIGRAINE. MAY REPEAT IN 2HRS. MAX 2 IN 24 HRS OR 4 PER WK)
     Route: 048
  2. TIZANIDINE. [Concomitant]
     Active Substance: TIZANIDINE
     Dosage: 4 MG, AS NEEDED (AT BEDTIME)
     Route: 048
  3. LYRICA [Suspect]
     Active Substance: PREGABALIN
     Indication: NECK PAIN
  4. LYRICA [Suspect]
     Active Substance: PREGABALIN
     Indication: MIGRAINE WITHOUT AURA
     Dosage: 300 MG, 2X/DAY
     Route: 048

REACTIONS (1)
  - Stress [Unknown]
